FAERS Safety Report 18351155 (Version 2)
Quarter: 2020Q4

REPORT INFORMATION
  Report Type: Report from Study
  Country: None (occurrence: NL)
  Receive Date: 20201007
  Receipt Date: 20201029
  Transmission Date: 20210114
  Serious: Yes (Death, Hospitalization, Other)
  Sender: FDA-Public Use
  Company Number: NL-ABBVIE-20K-114-3596588-00

PATIENT
  Age: 53 Year
  Sex: Female

DRUGS (9)
  1. DECITABINE. [Suspect]
     Active Substance: DECITABINE
     Dosage: FIRST COURSE 10 DAYS
     Route: 065
     Dates: start: 20200727, end: 2020
  2. CYTARABINE. [Concomitant]
     Active Substance: CYTARABINE
     Indication: ACUTE MYELOID LEUKAEMIA
     Dosage: HIGH DOSE
     Dates: start: 20200218, end: 20200619
  3. VENETOCLAX. [Suspect]
     Active Substance: VENETOCLAX
     Indication: ACUTE MYELOID LEUKAEMIA
     Dosage: ADJUSTMENT TO 100ML DOSE
     Route: 048
     Dates: start: 20200720, end: 20200813
  4. POSACONAZOLE [Concomitant]
     Active Substance: POSACONAZOLE
     Indication: ACUTE GRAFT VERSUS HOST DISEASE
     Dates: start: 20200802
  5. CELLCEPT [Concomitant]
     Active Substance: MYCOPHENOLATE MOFETIL\MYCOPHENOLATE MOFETIL HYDROCHLORIDE
     Indication: PRODUCT USED FOR UNKNOWN INDICATION
     Dates: start: 20200809
  6. CYCLOSPORIN [Concomitant]
     Active Substance: CYCLOSPORINE
     Indication: PRODUCT USED FOR UNKNOWN INDICATION
     Dates: start: 20200809
  7. PREDNISOLONE. [Concomitant]
     Active Substance: PREDNISOLONE
     Indication: ACUTE GRAFT VERSUS HOST DISEASE
     Dates: start: 20200802
  8. DECITABINE. [Suspect]
     Active Substance: DECITABINE
     Indication: ACUTE MYELOID LEUKAEMIA
     Dosage: FIRST COURSE 10 DAYS
     Route: 065
     Dates: start: 20200704
  9. MIDOSTAURINE [Concomitant]
     Active Substance: MIDOSTAURIN
     Indication: PRODUCT USED FOR UNKNOWN INDICATION
     Dosage: 28 DAYS: D1-21 AND 7 DAYS REST
     Dates: start: 20200708

REACTIONS (16)
  - Acute graft versus host disease in intestine [Unknown]
  - Acute myeloid leukaemia recurrent [Fatal]
  - Thrombotic microangiopathy [Unknown]
  - Neutrophil count increased [Unknown]
  - Diarrhoea [Recovered/Resolved]
  - Graft versus host disease in lung [Unknown]
  - Paraneoplastic thrombosis [Unknown]
  - Proctalgia [Unknown]
  - Off label use [Unknown]
  - Graft versus host disease in gastrointestinal tract [Unknown]
  - Blood lactate dehydrogenase abnormal [Unknown]
  - Epilepsy [Not Recovered/Not Resolved]
  - Graft versus host disease [Unknown]
  - Headache [Unknown]
  - Electrolyte imbalance [Unknown]
  - Febrile neutropenia [Unknown]

NARRATIVE: CASE EVENT DATE: 2020
